FAERS Safety Report 10160882 (Version 1)
Quarter: 2014Q2

REPORT INFORMATION
  Report Type: Spontaneous
  Country: IT (occurrence: IT)
  Receive Date: 20140508
  Receipt Date: 20140508
  Transmission Date: 20141212
  Serious: Yes (Hospitalization)
  Sender: FDA-Public Use
  Company Number: PHHY2014IT053435

PATIENT
  Age: 59 Year
  Sex: Male

DRUGS (1)
  1. AMOXICILLIN+CLAVULANATE [Suspect]
     Indication: TOOTHACHE
     Dosage: 1 G, ONCE/SINGLE
     Route: 048
     Dates: start: 20140219, end: 20140219

REACTIONS (1)
  - Anaphylactic shock [Recovered/Resolved]
